FAERS Safety Report 13871869 (Version 1)
Quarter: 2017Q3

REPORT INFORMATION
  Report Type: Report from Study
  Country: BR (occurrence: BR)
  Receive Date: 20170816
  Receipt Date: 20170816
  Transmission Date: 20171127
  Serious: Yes (Disabling)
  Sender: FDA-Public Use
  Company Number: BR-UCBSA-2017026878

PATIENT
  Sex: Female

DRUGS (4)
  1. CERTOLIZUMAB PEGOL [Suspect]
     Active Substance: CERTOLIZUMAB PEGOL
     Dosage: DOSE REDUCED
  2. ILARIS [Concomitant]
     Active Substance: CANAKINUMAB
     Indication: PRODUCT USED FOR UNKNOWN INDICATION
  3. PREDSIM [Concomitant]
     Active Substance: PREDNISOLONE
     Indication: RHEUMATOID ARTHRITIS
     Dosage: 40 MG
  4. CERTOLIZUMAB PEGOL [Suspect]
     Active Substance: CERTOLIZUMAB PEGOL
     Indication: RHEUMATOID ARTHRITIS
     Dosage: UNK
     Dates: end: 2016

REACTIONS (6)
  - Application site discolouration [Not Recovered/Not Resolved]
  - Inflammation [Unknown]
  - Hyperaesthesia [Unknown]
  - Gait inability [Unknown]
  - Hypersensitivity [Unknown]
  - Application site pain [Not Recovered/Not Resolved]
